FAERS Safety Report 16124634 (Version 6)
Quarter: 2020Q3

REPORT INFORMATION
  Report Type: Report from Study
  Country: FR (occurrence: FR)
  Receive Date: 20190327
  Receipt Date: 20200801
  Transmission Date: 20201102
  Serious: Yes (Hospitalization, Other)
  Sender: FDA-Public Use
  Company Number: PHHY2019FR048534

PATIENT
  Age: 80 Year
  Sex: Male
  Weight: 78.2 kg

DRUGS (20)
  1. ADOPORT [Suspect]
     Active Substance: TACROLIMUS
     Dosage: 8 MG, UNK
     Route: 048
     Dates: start: 20181203, end: 20181204
  2. ADOPORT [Suspect]
     Active Substance: TACROLIMUS
     Dosage: 7 MG, UNK
     Route: 048
     Dates: start: 20181205, end: 20181206
  3. ADOPORT [Suspect]
     Active Substance: TACROLIMUS
     Dosage: 5 MG, UNKNOWN
     Route: 048
     Dates: start: 20190110, end: 20190129
  4. ADOPORT [Suspect]
     Active Substance: TACROLIMUS
     Indication: RENAL TRANSPLANT
     Dosage: 4 MG, UNK
     Route: 048
     Dates: start: 20181202
  5. COTRIMOXAZOLE [Concomitant]
     Active Substance: SULFAMETHOXAZOLE\TRIMETHOPRIM
     Indication: PRODUCT USED FOR UNKNOWN INDICATION
     Dosage: UNK, UNKNOWN
     Route: 065
     Dates: start: 20181205
  6. CELLCEPT [Concomitant]
     Active Substance: MYCOPHENOLATE MOFETIL\MYCOPHENOLATE MOFETIL HYDROCHLORIDE
     Indication: PRODUCT USED FOR UNKNOWN INDICATION
     Dosage: UNK UNK, UNKNOWN
     Route: 065
     Dates: start: 20181202
  7. ADOPORT [Suspect]
     Active Substance: TACROLIMUS
     Dosage: 6 MG, UNK
     Route: 048
     Dates: start: 20181206, end: 20181207
  8. ADOPORT [Suspect]
     Active Substance: TACROLIMUS
     Dosage: 4 MG, UNKNOWN
     Route: 048
     Dates: start: 20181208, end: 20181210
  9. ADOPORT [Suspect]
     Active Substance: TACROLIMUS
     Dosage: 6 MG, UNK
     Route: 048
     Dates: start: 20181211, end: 20190110
  10. PREDNISOLON [Concomitant]
     Active Substance: PREDNISOLONE
     Indication: PRODUCT USED FOR UNKNOWN INDICATION
     Dosage: UNK
     Route: 065
     Dates: start: 20181203
  11. ADOPORT [Suspect]
     Active Substance: TACROLIMUS
     Dosage: 5 MG, UNK
     Route: 048
     Dates: start: 20181202
  12. ADOPORT [Suspect]
     Active Substance: TACROLIMUS
     Dosage: 8 MG, UNK
     Route: 048
     Dates: start: 20181204, end: 20181205
  13. ADOPORT [Suspect]
     Active Substance: TACROLIMUS
     Dosage: 5 MG, UNKNOWN
     Route: 048
     Dates: start: 20181207, end: 20181208
  14. ADOPORT [Suspect]
     Active Substance: TACROLIMUS
     Dosage: 6 MG, UNK
     Route: 048
     Dates: start: 20190129
  15. ADOPORT [Suspect]
     Active Substance: TACROLIMUS
     Dosage: 6 MG, UNK
     Route: 048
     Dates: start: 20190312, end: 20190312
  16. OMEPRAZOL [Concomitant]
     Active Substance: OMEPRAZOLE
     Indication: PRODUCT USED FOR UNKNOWN INDICATION
     Dosage: UNK UNK, UNKNOWN
     Route: 065
     Dates: start: 20181202
  17. ADOPORT [Suspect]
     Active Substance: TACROLIMUS
     Dosage: 6 MG, UNK
     Route: 048
     Dates: start: 20181203
  18. ADOPORT [Suspect]
     Active Substance: TACROLIMUS
     Dosage: 5 MG
     Route: 048
     Dates: start: 20181210, end: 20181211
  19. ALFUZOSINE [Concomitant]
     Active Substance: ALFUZOSIN HYDROCHLORIDE
     Indication: PRODUCT USED FOR UNKNOWN INDICATION
     Dosage: UNK UNK, UNKNOWN
     Route: 065
     Dates: start: 20181209
  20. AMLODIPINE [Concomitant]
     Active Substance: AMLODIPINE BESYLATE
     Indication: PRODUCT USED FOR UNKNOWN INDICATION
     Dosage: UNK UNK, UNKNOWN
     Route: 065
     Dates: start: 20181207

REACTIONS (6)
  - Pyelonephritis [Recovered/Resolved]
  - Bacterial pyelonephritis [Recovered/Resolved]
  - Pyrexia [Recovered/Resolved]
  - Polyomavirus-associated nephropathy [Unknown]
  - Pseudomonas test positive [Unknown]
  - Pollakiuria [Recovered/Resolved]

NARRATIVE: CASE EVENT DATE: 20190104
